FAERS Safety Report 19198857 (Version 2)
Quarter: 2021Q2

REPORT INFORMATION
  Report Type: Report from Study
  Country: FR (occurrence: FR)
  Receive Date: 20210430
  Receipt Date: 20210511
  Transmission Date: 20210717
  Serious: Yes (Hospitalization, Other)
  Sender: FDA-Public Use
  Company Number: NVSC2021FR092749

PATIENT
  Sex: Female
  Weight: 60 kg

DRUGS (3)
  1. INC280 [Suspect]
     Active Substance: CAPMATINIB
     Indication: CENTRAL NERVOUS SYSTEM LESION
     Dosage: 200 MG, BID (2 DOSES OF 200 MG DAILY)
     Route: 048
  2. LEVOTHYROX [Concomitant]
     Active Substance: LEVOTHYROXINE
     Indication: HYPOTHYROIDISM
     Dosage: 75 UG
     Route: 048
     Dates: start: 20200924
  3. INC280 [Suspect]
     Active Substance: CAPMATINIB
     Indication: LUNG ADENOCARCINOMA
     Dosage: 400 MG, BID (2 DOSES OF 400 MG DAILY)
     Route: 048
     Dates: start: 20201102

REACTIONS (3)
  - Pleurisy [Not Recovered/Not Resolved]
  - Oedema peripheral [Recovered/Resolved]
  - Hepatic cytolysis [Recovered/Resolved]

NARRATIVE: CASE EVENT DATE: 20201231
